FAERS Safety Report 11741736 (Version 4)
Quarter: 2015Q4

REPORT INFORMATION
  Report Type: Spontaneous
  Country: US (occurrence: US)
  Receive Date: 20151116
  Receipt Date: 20151125
  Transmission Date: 20160304
  Serious: Yes (Hospitalization)
  Sender: FDA-Public Use
  Company Number: CHPA2015US013387

PATIENT
  Age: 48 Year
  Sex: Female

DRUGS (1)
  1. VOLTAREN [Suspect]
     Active Substance: DICLOFENAC SODIUM
     Indication: MULTIPLE SCLEROSIS
     Dosage: 1/2-1 TSP, ONCE OR TWICE A DAY
     Route: 061
     Dates: start: 20140701, end: 20141022

REACTIONS (9)
  - Wrong technique in product usage process [Unknown]
  - Coma [Recovered/Resolved]
  - Fall [Recovered/Resolved]
  - Muscular weakness [Recovered/Resolved]
  - Drug administered at inappropriate site [Unknown]
  - Inappropriate schedule of drug administration [Unknown]
  - Therapeutic response unexpected [Unknown]
  - Seizure [Recovered/Resolved]
  - Product use issue [Unknown]

NARRATIVE: CASE EVENT DATE: 20140701
